FAERS Safety Report 12209466 (Version 1)
Quarter: 2016Q1

REPORT INFORMATION
  Report Type: Spontaneous
  Country: US (occurrence: US)
  Receive Date: 20160324
  Receipt Date: 20160324
  Transmission Date: 20160526
  Serious: Yes (Hospitalization, Other)
  Sender: FDA-Public Use
  Company Number: US-TAKEDA-2016TUS004891

PATIENT
  Age: 79 Year
  Sex: Male

DRUGS (3)
  1. SODIUM THIOSULPHATE [Interacting]
     Active Substance: SODIUM THIOSULFATE
     Indication: CALCIPHYLAXIS
     Dosage: UNK
     Route: 042
     Dates: start: 201603, end: 201603
  2. ULORIC [Suspect]
     Active Substance: FEBUXOSTAT
     Indication: GOUT
     Dosage: UNK
     Route: 065
     Dates: start: 2013, end: 20160311
  3. CRESTOR [Concomitant]
     Active Substance: ROSUVASTATIN CALCIUM
     Dosage: UNK
     Dates: start: 201603

REACTIONS (7)
  - Calciphylaxis [Unknown]
  - Chest discomfort [Unknown]
  - End stage renal disease [Unknown]
  - Muscular weakness [Recovered/Resolved]
  - Parathyroidectomy [Unknown]
  - Blood creatine phosphokinase increased [Recovered/Resolved]
  - Skin ulcer [Unknown]

NARRATIVE: CASE EVENT DATE: 201512
